FAERS Safety Report 14112864 (Version 2)
Quarter: 2019Q1

REPORT INFORMATION
  Report Type: Other
  Country: NL (occurrence: NL)
  Receive Date: 20171022
  Receipt Date: 20190207
  Transmission Date: 20190417
  Serious: Yes (Hospitalization, Other)
  Sender: FDA-Public Use
  Company Number: NL-MLMSERVICE-20171009-0917278-1

PATIENT
  Age: 23 Year
  Sex: Female

DRUGS (1)
  1. NITROUS OXIDE. [Suspect]
     Active Substance: NITROUS OXIDE
     Indication: DRUG ABUSE

REACTIONS (7)
  - Vitamin B12 deficiency [Recovered/Resolved]
  - Demyelination [Unknown]
  - Drug abuse [Unknown]
  - Paresis [Not Recovered/Not Resolved]
  - Polyneuropathy [Unknown]
  - Haemolytic anaemia [Not Recovered/Not Resolved]
  - Leukopenia [Not Recovered/Not Resolved]
